FAERS Safety Report 9198406 (Version 1)
Quarter: 2013Q1

REPORT INFORMATION
  Report Type: Spontaneous
  Country: IN (occurrence: None)
  Receive Date: 20130326
  Receipt Date: 20130326
  Transmission Date: 20140127
  Serious: Yes (Death)
  Sender: FDA-Public Use
  Company Number: B0876457A

PATIENT
  Age: 62 Year
  Sex: Male

DRUGS (5)
  1. MELPHALAN [Suspect]
     Indication: HAEMATOPOIETIC STEM CELL MOBILISATION
  2. BORTEZOMIB [Concomitant]
  3. DEXAMETHASONE [Concomitant]
  4. FILGRASTIM [Concomitant]
  5. CALCIUM PHOSPHATE [Concomitant]

REACTIONS (3)
  - Gastrointestinal inflammation [None]
  - Ileus [None]
  - Platelet count decreased [None]
